FAERS Safety Report 15304389 (Version 1)
Quarter: 2018Q3

REPORT INFORMATION
  Report Type: Report from Study
  Country: US (occurrence: US)
  Receive Date: 20180821
  Receipt Date: 20180821
  Transmission Date: 20181010
  Serious: No
  Sender: FDA-Public Use
  Company Number: US-AMGEN INC.-USASL2018094493

PATIENT
  Age: 47 Year
  Sex: Female
  Weight: 85.71 kg

DRUGS (1)
  1. AIMOVIG [Suspect]
     Active Substance: ERENUMAB-AOOE
     Indication: MIGRAINE WITH AURA
     Dosage: 70 MG, QMO
     Route: 058
     Dates: start: 20180612

REACTIONS (6)
  - Weight increased [Not Recovered/Not Resolved]
  - Irritability [Recovering/Resolving]
  - Oedema [Recovering/Resolving]
  - Injection site urticaria [Recovered/Resolved]
  - Injection site pain [Unknown]
  - Constipation [Not Recovered/Not Resolved]

NARRATIVE: CASE EVENT DATE: 2018
